FAERS Safety Report 7778165-3 (Version None)
Quarter: 2011Q3

REPORT INFORMATION
  Report Type: 
  Country: None (occurrence: None)
  Receive Date: 20110922
  Receipt Date: 20110913
  Transmission Date: 20111222
  Serious: Yes (Death)
  Sender: FDA-Public Use
  Company Number: JP-2011-11506

PATIENT
  Age: 51 Year
  Sex: Female

DRUGS (6)
  1. CILOSTAZOL [Suspect]
     Indication: DIABETIC NEPHROPATHY
     Dosage: 100 MG MILLIGRAM(S), BID, ORAL
     Route: 048
     Dates: start: 20100705, end: 20110913
  2. IRBESARTAN (IRBESARTAN) TABLET [Concomitant]
  3. PROBUCOL [Suspect]
     Indication: DIABETIC NEPHROPATHY
     Dosage: 0.25 G GRAM(S), BID, ORAL
     Route: 048
     Dates: start: 20110705, end: 20110913
  4. METFORMIN HYDROCHLORIDE [Concomitant]
  5. CARVEDILOL [Concomitant]
  6. ASPIRIN [Concomitant]

REACTIONS (1)
  - ACUTE MYOCARDIAL INFARCTION [None]
